FAERS Safety Report 5480128-8 (Version None)
Quarter: 2007Q4

REPORT INFORMATION
  Report Type: 
  Country: None (occurrence: None)
  Receive Date: 20071009
  Receipt Date: 20071001
  Transmission Date: 20080405
  Serious: Yes (Other)
  Sender: FDA-Public Use
  Company Number: PHFR2007GB02475

PATIENT
  Sex: Female

DRUGS (2)
  1. NORETHINDRONE ACETATE AND ETHINYL ESTRADIOL [Suspect]
     Route: 065
  2. DIENOESTROL [Suspect]
     Route: 065

REACTIONS (2)
  - CONDITION AGGRAVATED [None]
  - SYSTEMIC LUPUS ERYTHEMATOSUS [None]
